FAERS Safety Report 14472456 (Version 1)
Quarter: 2018Q1

REPORT INFORMATION
  Report Type: Spontaneous
  Country: GB (occurrence: GB)
  Receive Date: 20180201
  Receipt Date: 20180201
  Transmission Date: 20180509
  Serious: Yes (Other)
  Sender: FDA-Public Use
  Company Number: GB-TEVA-2018-GB-852768

PATIENT
  Age: 76 Year
  Sex: Female

DRUGS (1)
  1. ACICLOVIR [Suspect]
     Active Substance: ACYCLOVIR
     Indication: HERPES ZOSTER
     Dosage: 4000 MILLIGRAM DAILY;
     Route: 065

REACTIONS (5)
  - Discomfort [Unknown]
  - Drug hypersensitivity [Unknown]
  - Urticaria [Unknown]
  - Dermatitis allergic [Unknown]
  - Pruritus [Unknown]
